FAERS Safety Report 5001250-6 (Version None)
Quarter: 2006Q1

REPORT INFORMATION
  Report Type: 
  Country: None (occurrence: None)
  Receive Date: 20060315
  Receipt Date: 20051216
  Transmission Date: 20060701
  Serious: Yes (Hospitalization)
  Sender: FDA-Public Use
  Company Number: 429255

PATIENT
  Sex: Female

DRUGS (5)
  1. BONIVA [Suspect]
     Indication: OSTEOPOROSIS
     Dates: start: 20051015, end: 20051115
  2. GEODON [Concomitant]
  3. PERCOCET (OXYCODONE/PARACETAMOL) [Concomitant]
  4. SLEEPING PILL NOS (HYPNOTIC NOS) [Concomitant]
  5. MUSCLE RELAXANT NOS (MUSCLE RELAXANT NOS) [Concomitant]

REACTIONS (1)
  - HYPERSENSITIVITY [None]
